FAERS Safety Report 9475783 (Version 1)
Quarter: 2013Q3

REPORT INFORMATION
  Report Type: Spontaneous
  Country: US (occurrence: US)
  Receive Date: 20130826
  Receipt Date: 20130826
  Transmission Date: 20140515
  Serious: No
  Sender: FDA-Public Use
  Company Number: US-PFIZER INC-2013244193

PATIENT
  Age: 49 Year
  Sex: Female

DRUGS (5)
  1. XANAX [Suspect]
     Dosage: UNK
  2. NEURONTIN [Suspect]
     Dosage: UNK
  3. CYMBALTA [Suspect]
     Dosage: UNK
  4. AMBIEN [Suspect]
     Dosage: UNK
  5. INTERMEZZO [Suspect]
     Dosage: UNK

REACTIONS (2)
  - Intentional overdose [Unknown]
  - Middle insomnia [Not Recovered/Not Resolved]
